FAERS Safety Report 4644275-2 (Version None)
Quarter: 2005Q2

REPORT INFORMATION
  Report Type: 
  Country: None (occurrence: None)
  Receive Date: 20050425
  Receipt Date: 20050412
  Transmission Date: 20051028
  Serious: Yes (Hospitalization)
  Sender: FDA-Public Use
  Company Number: NO-MERCK-0504NOR00023

PATIENT
  Age: 75 Year
  Sex: Male

DRUGS (5)
  1. VIOXX [Suspect]
     Indication: PAIN
     Route: 048
     Dates: start: 20010101, end: 20041001
  2. ACETAMINOPHEN AND CODEINE PHOSPHATE [Concomitant]
     Route: 065
  3. FERROUS SULFATE [Concomitant]
     Route: 065
  4. IRON DEXTRAN [Concomitant]
     Route: 065
  5. CLOPIDOGREL BISULFATE [Concomitant]
     Route: 048

REACTIONS (4)
  - CEREBRAL INFARCTION [None]
  - CYANOSIS [None]
  - EXTREMITY NECROSIS [None]
  - PAIN IN EXTREMITY [None]
